FAERS Safety Report 10042551 (Version 1)
Quarter: 2014Q1

REPORT INFORMATION
  Report Type: Spontaneous
  Country: US (occurrence: None)
  Receive Date: 20140325
  Receipt Date: 20140325
  Transmission Date: 20141002
  Serious: Yes (Other)
  Sender: FDA-Public Use
  Company Number: BR14-083-AE

PATIENT
  Age: 42 Year
  Sex: Female
  Weight: 92.99 kg

DRUGS (2)
  1. SPIRONOLACTONE [Suspect]
     Indication: ENDOMETRIOSIS
     Route: 048
     Dates: start: 20140106, end: 20140125
  2. SPIRONOLACTONE [Suspect]
     Indication: MULTIPLE ALLERGIES
     Route: 048
     Dates: start: 20140106, end: 20140125

REACTIONS (4)
  - Anaphylactic reaction [None]
  - Tremor [None]
  - Asthma [None]
  - Impaired driving ability [None]
